FAERS Safety Report 8834879 (Version 4)
Quarter: 2014Q1

REPORT INFORMATION
  Report Type: Report from Study
  Country: US (occurrence: US)
  Receive Date: 20121011
  Receipt Date: 20140217
  Transmission Date: 20141002
  Serious: Yes (Life-Threatening, Other)
  Sender: FDA-Public Use
  Company Number: US-BIOGENIDEC-2012BI043687

PATIENT
  Age: 66 Year
  Sex: Female

DRUGS (10)
  1. TYSABRI [Suspect]
     Indication: MULTIPLE SCLEROSIS
     Route: 042
     Dates: start: 20081016, end: 20120803
  2. TYSABRI [Suspect]
     Indication: MULTIPLE SCLEROSIS
     Route: 042
     Dates: start: 20130425
  3. ARICEPT [Concomitant]
     Indication: AMNESIA
     Dates: start: 20110809
  4. METHYLPHENIDATE [Concomitant]
     Indication: FATIGUE
     Dates: start: 20120315
  5. FOSAMAX [Concomitant]
  6. LORTAB [Concomitant]
  7. NEURONTIN [Concomitant]
  8. PROMETHAZINE [Concomitant]
  9. REGLAN [Concomitant]
  10. ZENPEP [Concomitant]

REACTIONS (2)
  - Squamous cell carcinoma of skin [Unknown]
  - Bone cancer metastatic [Not Recovered/Not Resolved]
